FAERS Safety Report 6007105-2 (Version None)
Quarter: 2008Q4

REPORT INFORMATION
  Report Type: 
  Country: None (occurrence: None)
  Receive Date: 20081217
  Receipt Date: 20080111
  Transmission Date: 20090506
  Serious: No
  Sender: FDA-Public Use
  Company Number: US-ASTRAZENECA-2008UW00897

PATIENT
  Age: 54 Year
  Sex: Female
  Weight: 86.2 kg

DRUGS (2)
  1. CRESTOR [Suspect]
     Indication: BLOOD CHOLESTEROL INCREASED
  2. VITAMINS [Concomitant]

REACTIONS (2)
  - ASTHENIA [None]
  - HYPOAESTHESIA [None]
